FAERS Safety Report 6262214-8 (Version None)
Quarter: 2009Q3

REPORT INFORMATION
  Report Type: 
  Country: None (occurrence: None)
  Receive Date: 20090709
  Receipt Date: 20090625
  Transmission Date: 20100115
  Serious: Yes (Hospitalization)
  Sender: FDA-Public Use
  Company Number: AU-ASTRAZENECA-2008AP07760

PATIENT
  Age: 21784 Day
  Sex: Female

DRUGS (1)
  1. ARIMIDEX [Suspect]
     Indication: BREAST CANCER
     Dosage: 2 DOSES UNSPECIFIED TOTAL
     Route: 048
     Dates: start: 20080901, end: 20080901

REACTIONS (1)
  - MIGRAINE [None]
